FAERS Safety Report 7429140-X (Version None)
Quarter: 2011Q2

REPORT INFORMATION
  Report Type: 
  Country: None (occurrence: None)
  Receive Date: 20110421
  Receipt Date: 20110413
  Transmission Date: 20111010
  Serious: Yes (Death, Hospitalization, Other)
  Sender: FDA-Public Use
  Company Number: US-SANOFI-AVENTIS-2010SA073778

PATIENT
  Age: 82 Year
  Sex: Male
  Weight: 73 kg

DRUGS (17)
  1. ADVAIR HFA [Concomitant]
  2. NEURONTIN [Concomitant]
  3. RANITIDINE [Concomitant]
  4. PLAVIX [Suspect]
     Route: 048
     Dates: start: 20050719, end: 20100304
  5. TENORMIN [Concomitant]
  6. METOPROLOL [Concomitant]
  7. OXYGEN [Concomitant]
  8. TENORMIN [Concomitant]
     Indication: BLOOD PRESSURE
     Dates: start: 20050601, end: 20100304
  9. ANTI-SMOKING AGENTS [Concomitant]
  10. ACETAMINOPHEN [Concomitant]
  11. SPIRIVA [Concomitant]
  12. PERCOCET [Concomitant]
  13. LIPITOR [Concomitant]
     Route: 065
  14. ACIPHEX [Concomitant]
  15. PLAVIX [Suspect]
     Indication: VASCULAR STENT INSERTION
     Route: 048
     Dates: start: 20040401, end: 20050101
  16. ASPIRIN [Suspect]
     Route: 065
  17. IPRATROPIUM BROMIDE/SALBUTAMOL SULFATE [Concomitant]

REACTIONS (13)
  - PNEUMOTHORAX [None]
  - OSTEOPENIA [None]
  - HYPERTENSION [None]
  - PERIPHERAL ARTERIAL OCCLUSIVE DISEASE [None]
  - CHEST PAIN [None]
  - CONDITION AGGRAVATED [None]
  - COUGH [None]
  - ABDOMINAL PAIN [None]
  - HAEMORRHAGIC STROKE [None]
  - DYSPNOEA [None]
  - HERPES ZOSTER [None]
  - THALAMUS HAEMORRHAGE [None]
  - LOSS OF CONSCIOUSNESS [None]
